FAERS Safety Report 12614023 (Version 4)
Quarter: 2018Q1

REPORT INFORMATION
  Report Type: Spontaneous
  Country: US (occurrence: US)
  Receive Date: 20160802
  Receipt Date: 20180110
  Transmission Date: 20180508
  Serious: No
  Sender: FDA-Public Use
  Company Number: US-PFIZER INC-2016369074

PATIENT
  Age: 55 Year
  Sex: Female

DRUGS (28)
  1. PROVERA [Suspect]
     Active Substance: MEDROXYPROGESTERONE ACETATE
     Dosage: UNK
  2. NEXIUM [Suspect]
     Active Substance: ESOMEPRAZOLE MAGNESIUM
     Dosage: UNK
  3. THIMEROSAL [Suspect]
     Active Substance: THIMEROSAL
     Dosage: UNK
     Route: 061
  4. BYETTA [Suspect]
     Active Substance: EXENATIDE
  5. SCLAVOTEST [Suspect]
     Active Substance: TUBERCULIN PURIFIED PROTEIN DERIVATIVE
     Dosage: UNK
  6. METROCREAM [Suspect]
     Active Substance: METRONIDAZOLE
  7. GLOBULIN (IMMUNOGLOBULIN HUMAN NORMAL) [Suspect]
     Active Substance: HUMAN IMMUNOGLOBULIN G
     Dosage: UNK
  8. PROVIGIL [Suspect]
     Active Substance: MODAFINIL
  9. SULFADIAZINE. [Suspect]
     Active Substance: SULFADIAZINE
     Dosage: UNK
  10. REGLAN [Suspect]
     Active Substance: METOCLOPRAMIDE HYDROCHLORIDE
     Dosage: UNK
  11. PROCHLORPERAZINE. [Suspect]
     Active Substance: PROCHLORPERAZINE
  12. TRILIPIX [Suspect]
     Active Substance: FENOFIBRIC ACID
     Dosage: UNK
  13. ALOE VERA [Suspect]
     Active Substance: ALOE VERA LEAF
     Dosage: UNK
     Route: 061
  14. BETADINE [Suspect]
     Active Substance: POVIDONE-IODINE
     Dosage: UNK
  15. CARBONYL IRON [Suspect]
     Active Substance: IRON
     Dosage: UNK
  16. NICKEL [Suspect]
     Active Substance: NICKEL
     Dosage: UNK
  17. GAMMA GLOBULIN [Suspect]
     Active Substance: IMMUNE GLOBULIN NOS
     Dosage: UNK
  18. ERYTHROMYCIN. [Suspect]
     Active Substance: ERYTHROMYCIN
     Dosage: UNK
  19. BENTYL [Suspect]
     Active Substance: DICYCLOMINE HYDROCHLORIDE
     Dosage: UNK
  20. ZOCOR [Suspect]
     Active Substance: SIMVASTATIN
     Dosage: UNK
  21. DIOVAN [Suspect]
     Active Substance: VALSARTAN
     Dosage: UNK
  22. IMMUNE GLOBULIN [Suspect]
     Active Substance: HUMAN IMMUNOGLOBULIN G
     Dosage: UNK
     Route: 042
  23. LIBRAX [Suspect]
     Active Substance: CHLORDIAZEPOXIDE HYDROCHLORIDE\CLIDINIUM BROMIDE
     Dosage: UNK
  24. CORTISONE [Suspect]
     Active Substance: CORTISONE\HYDROCORTISONE
     Dosage: UNK
  25. NORTRIPTYLINE [Suspect]
     Active Substance: NORTRIPTYLINE
     Dosage: UNK
  26. IODINE. [Suspect]
     Active Substance: IODINE
     Dosage: UNK
     Route: 061
  27. ENABLEX [Suspect]
     Active Substance: DARIFENACIN HYDROBROMIDE
  28. GAMMA GLOBULIN HUMAN [Suspect]
     Active Substance: HUMAN IMMUNOGLOBULIN G

REACTIONS (1)
  - Drug hypersensitivity [Unknown]
